FAERS Safety Report 25470796 (Version 3)
Quarter: 2025Q3

REPORT INFORMATION
  Report Type: Report from Study
  Country: US (occurrence: US)
  Receive Date: 20250624
  Receipt Date: 20250724
  Transmission Date: 20251020
  Serious: Yes (Hospitalization, Other)
  Sender: CSL BEHRING
  Company Number: US-BEH-2025209719

PATIENT
  Age: 63 Year
  Sex: Female
  Weight: 65 kg

DRUGS (3)
  1. PRIVIGEN [Suspect]
     Active Substance: HUMAN IMMUNOGLOBULIN G
     Indication: Product used for unknown indication
     Route: 065
  2. PRIVIGEN [Suspect]
     Active Substance: HUMAN IMMUNOGLOBULIN G
     Route: 065
  3. HIZENTRA [Suspect]
     Active Substance: HUMAN IMMUNOGLOBULIN G
     Route: 065

REACTIONS (7)
  - Hospitalisation [Unknown]
  - Loss of consciousness [Unknown]
  - Loss of consciousness [Unknown]
  - Heart rate decreased [Unknown]
  - Heart rate decreased [Unknown]
  - Incorrect drug administration rate [Unknown]
  - Malaise [Unknown]

NARRATIVE: CASE EVENT DATE: 20250529
